FAERS Safety Report 9459924 (Version 1)
Quarter: 2013Q3

REPORT INFORMATION
  Report Type: Spontaneous
  Country: US (occurrence: US)
  Receive Date: 20130815
  Receipt Date: 20130815
  Transmission Date: 20140515
  Serious: No
  Sender: FDA-Public Use
  Company Number: US-BAYER-2013-098480

PATIENT
  Sex: Female

DRUGS (1)
  1. NATAZIA [Suspect]
     Dosage: UNK
     Route: 048

REACTIONS (3)
  - Nausea [None]
  - Withdrawal bleed [None]
  - Chest pain [None]
